FAERS Safety Report 7664540 (Version 4)
Quarter: 2013Q1

REPORT INFORMATION
  Report Type: Spontaneous
  Country: US (occurrence: US)
  Receive Date: 20101111
  Receipt Date: 20130313
  Transmission Date: 20140127
  Serious: Yes (Hospitalization, Other)
  Sender: FDA-Public Use
  Company Number: US-ROCHE-718975

PATIENT
  Age: 25 None
  Sex: Male
  Weight: 86.2 kg

DRUGS (1)
  1. ACCUTANE [Suspect]
     Indication: ACNE
     Route: 065
     Dates: start: 1991, end: 1992

REACTIONS (5)
  - Proctitis ulcerative [Unknown]
  - Gastrointestinal injury [Unknown]
  - Inflammatory bowel disease [Unknown]
  - Anal fissure [Unknown]
  - Nephrolithiasis [Recovered/Resolved]
